FAERS Safety Report 6401525-X (Version None)
Quarter: 2009Q4

REPORT INFORMATION
  Report Type: 
  Country: None (occurrence: None)
  Receive Date: 20091015
  Receipt Date: 20091006
  Transmission Date: 20100525
  Serious: Yes (Death)
  Sender: FDA-Public Use
  Company Number: US-NOVOPROD-290340

PATIENT
  Sex: Male
  Weight: 31.1 kg

DRUGS (26)
  1. NORDITROPIN NORDIFLEX [Suspect]
     Indication: GROWTH HORMONE DEFICIENCY
     Dosage: 1.8 MG, QD AT H.S.
     Route: 058
     Dates: start: 20060101, end: 20090728
  2. IMMUNOSUPPRESSANTS [Concomitant]
     Indication: HEART TRANSPLANT
     Dosage: UNKNOWN
  3. PREDNISONE [Concomitant]
     Indication: AORTIC CALCIFICATION
     Dosage: UNKNOWN
     Route: 048
  4. CARDIAC THERAPY [Concomitant]
     Indication: CARDIAC VALVE DISEASE
     Dosage: UNKNOWN
  5. RENAL [Concomitant]
     Indication: RENAL FAILURE CHRONIC
     Dosage: UNKNOWN
  6. LISINOPRIL [Concomitant]
     Indication: DRUG USE FOR UNKNOWN INDICATION
     Dosage: 10 MG, QD
     Route: 065
  7. CELLCEPT [Concomitant]
     Indication: DRUG USE FOR UNKNOWN INDICATION
     Dosage: 200 MG/ML, BID
     Route: 065
  8. ASPIRIN [Concomitant]
     Indication: DRUG USE FOR UNKNOWN INDICATION
     Dosage: 81 MG, QD
     Route: 065
  9. LIPITOR [Concomitant]
     Indication: DRUG USE FOR UNKNOWN INDICATION
     Dosage: 10 MG, QD AT BEDTIME
     Route: 065
  10. PREDNISONE [Concomitant]
     Indication: DRUG USE FOR UNKNOWN INDICATION
     Dosage: 7.5 TAB, QD
     Route: 065
  11. FAMOTIDINE [Concomitant]
     Indication: DRUG USE FOR UNKNOWN INDICATION
     Dosage: 20 MG, BID
     Route: 065
  12. LORATADINE [Concomitant]
     Indication: DRUG USE FOR UNKNOWN INDICATION
     Dosage: 10 MG, QD
     Route: 065
  13. DIGOXIN [Concomitant]
     Indication: DRUG USE FOR UNKNOWN INDICATION
     Dosage: .125 UNK, QD
     Route: 065
  14. BACTRIM [Concomitant]
     Indication: DRUG USE FOR UNKNOWN INDICATION
     Dosage: 400/80 MG BID (MONDAY, WEDNESDAY, FRIDAY)
     Route: 065
  15. RAPAMUNE [Concomitant]
     Indication: DRUG USE FOR UNKNOWN INDICATION
     Dosage: 2 MG, QD
     Route: 065
  16. LEVOTHYROXINE SODIUM [Concomitant]
     Indication: HYPOTHYROIDISM
     Dosage: 50 UG, QD
     Route: 065
  17. FERROUS SULFATE TAB [Concomitant]
     Indication: DRUG USE FOR UNKNOWN INDICATION
     Dosage: 325 MG, BID
     Route: 065
  18. POTASSIUM CITRATE [Concomitant]
     Indication: DRUG USE FOR UNKNOWN INDICATION
     Dosage: 1080 MG, BID
     Route: 065
  19. SENNA-S                            /00936101/ [Concomitant]
     Indication: DRUG USE FOR UNKNOWN INDICATION
     Dosage: 1 TAB, BID
     Route: 065
  20. QVAR 40 [Concomitant]
     Indication: DRUG USE FOR UNKNOWN INDICATION
     Dosage: 2 PUFF, BID
     Route: 065
  21. XOPENEX HFA [Concomitant]
     Indication: DRUG USE FOR UNKNOWN INDICATION
     Dosage: 2-4 PUFF, PRN
     Route: 055
  22. RHINOCORT [Concomitant]
     Indication: DRUG USE FOR UNKNOWN INDICATION
     Dosage: 2 PUFF (EACH NOSTRIL), PRN
     Route: 055
  23. SYSTANE [Concomitant]
     Indication: DRUG USE FOR UNKNOWN INDICATION
     Dosage: 1 GTT EACH EYE, PRN
     Route: 031
  24. BENZAMYCIN                         /00932901/ [Concomitant]
     Indication: SKIN PAPILLOMA
     Dosage: UNK, PRN
     Route: 061
  25. PROCRIT                            /00909301/ [Concomitant]
     Indication: DRUG USE FOR UNKNOWN INDICATION
     Dosage: 20000 U/ML, UNK
     Route: 058
  26. MAGNESIUM OXIDE [Concomitant]
     Indication: DRUG USE FOR UNKNOWN INDICATION
     Dosage: 400 MG, BID

REACTIONS (1)
  - OPERATIVE HAEMORRHAGE [None]
